FAERS Safety Report 8500237-6 (Version None)
Quarter: 2012Q3

REPORT INFORMATION
  Report Type: 
  Country: None (occurrence: None)
  Receive Date: 20120710
  Receipt Date: 20120706
  Transmission Date: 20120928
  Serious: Yes (Congenital Anomaly)
  Sender: FDA-Public Use
  Company Number: GXKR2012DE002098

PATIENT

DRUGS (12)
  1. VITAMIN B-12 [Concomitant]
     Dosage: MATERNAL DOSE: 3 [MG/D ]/ 13.04.2011,  19.04.2011 AND GW 10
     Route: 064
  2. CEFUROXIME [Concomitant]
     Route: 064
  3. NIFICAL [Concomitant]
     Dosage: MATERNAL DOSE: 5 [MG/2H ]
     Route: 064
  4. FOLIC ACID [Concomitant]
     Dosage: MATERNAL DOSE: 0.8 [MG/D ]
     Route: 064
  5. BUDENOFALK [Concomitant]
     Dosage: MATERNAL DOSE: 6 [MG/D (2X3) ]
     Route: 064
  6. CELESTAN [Concomitant]
     Dosage: MATERNAL DOSE: 24 [MG/D ]/ 2X12 MG/D
     Route: 064
  7. BUDESONIDE [Suspect]
     Dosage: MATERNAL DOSE: 1 INHALATION/ DAY
     Route: 064
  8. MINERALS NOS [Concomitant]
     Route: 064
  9. ALBUTEROL SULATE [Suspect]
     Route: 064
  10. PROGESTERONE [Concomitant]
     Dosage: MATERNAL DOSE: 150 [MG/D ]
     Route: 064
  11. BUSCOPAN [Concomitant]
     Dosage: MATERNAL DOSE: 10 [MG/D ]/ FROM GW 25 UNTIL DELIVERY; AS NEEDED
     Route: 064
     Dates: end: 20111110
  12. PARTUSISTEN [Concomitant]
     Route: 064

REACTIONS (3)
  - ATRIAL SEPTAL DEFECT [None]
  - PULMONARY ARTERY STENOSIS [None]
  - FOETAL EXPOSURE DURING PREGNANCY [None]
